FAERS Safety Report 20375883 (Version 1)
Quarter: 2022Q1

REPORT INFORMATION
  Report Type: Spontaneous
  Country: FR (occurrence: FR)
  Receive Date: 20220125
  Receipt Date: 20220125
  Transmission Date: 20220423
  Serious: Yes (Other)
  Sender: FDA-Public Use
  Company Number: FR-Accord-249653

PATIENT
  Age: 40 Year
  Sex: Female

DRUGS (1)
  1. METHOTREXATE [Suspect]
     Active Substance: METHOTREXATE
     Indication: Systemic lupus erythematosus
     Dosage: DECREASED TO 10 MG PER WEEK. A TOTAL OF 31 INJECTIONS. CUMULATIVE DOSE APPROX.880MG
     Route: 058

REACTIONS (2)
  - Koebner phenomenon [Recovered/Resolved]
  - Off label use [Unknown]
